FAERS Safety Report 20618839 (Version 1)
Quarter: 2022Q1

REPORT INFORMATION
  Report Type: Spontaneous
  Country: US (occurrence: US)
  Receive Date: 20220322
  Receipt Date: 20220322
  Transmission Date: 20220423
  Serious: No
  Sender: FDA-Public Use
  Company Number: US-SUN PHARMACEUTICAL INDUSTRIES LTD-2021R1-319816

PATIENT
  Age: 41 Year
  Sex: Female

DRUGS (1)
  1. WINLEVI [Suspect]
     Active Substance: CLASCOTERONE
     Indication: Product used for unknown indication
     Dosage: UNK UNK, QD
     Route: 065
     Dates: start: 20211117

REACTIONS (6)
  - Menstruation delayed [Unknown]
  - Lethargy [Unknown]
  - Breast swelling [Unknown]
  - Breast tenderness [Unknown]
  - Increased appetite [Unknown]
  - Weight increased [Unknown]

NARRATIVE: CASE EVENT DATE: 20211128
